FAERS Safety Report 21683137 (Version 4)
Quarter: 2023Q1

REPORT INFORMATION
  Report Type: Spontaneous
  Country: HR (occurrence: HR)
  Receive Date: 20221205
  Receipt Date: 20230214
  Transmission Date: 20230418
  Serious: Yes (Hospitalization, Other)
  Sender: FDA-Public Use
  Company Number: HR-TAKEDA-2022TUS092028

PATIENT
  Age: 81 Year
  Sex: Female
  Weight: 52 kg

DRUGS (8)
  1. OBIZUR [Suspect]
     Active Substance: ANTIHEMOPHILIC FACTOR PORCINE, B-DOMAIN TRUNCATED RECOMBINANT
     Indication: Acquired haemophilia
     Dosage: UNK, QD
     Route: 042
     Dates: start: 20221028, end: 20221127
  2. OBIZUR [Suspect]
     Active Substance: ANTIHEMOPHILIC FACTOR PORCINE, B-DOMAIN TRUNCATED RECOMBINANT
     Indication: Acquired haemophilia
     Dosage: UNK, QD
     Route: 042
     Dates: start: 20221028, end: 20221127
  3. NOVOSEVEN [Concomitant]
     Active Substance: COAGULATION FACTOR VIIA RECOMBINANT HUMAN
     Indication: Acquired haemophilia
     Dosage: 5 MILLIGRAM
     Route: 042
     Dates: start: 20221122, end: 20221122
  4. FACTOR XIII CONCENTRATE (HUMAN) [Concomitant]
     Active Substance: FACTOR XIII CONCENTRATE (HUMAN)
     Indication: Factor XIII deficiency
     Dosage: 1250 INTERNATIONAL UNIT
     Route: 065
     Dates: start: 20221121, end: 20221122
  5. METHYLPREDNISOLONE [Concomitant]
     Active Substance: METHYLPREDNISOLONE
     Indication: Immunosuppressant drug therapy
     Dosage: 32 MILLIGRAM, QD
     Route: 065
     Dates: start: 20221013, end: 20221208
  6. METHYLPREDNISOLONE [Concomitant]
     Active Substance: METHYLPREDNISOLONE
     Dosage: 16 MILLIGRAM, QD
     Route: 065
     Dates: start: 20221013, end: 20221208
  7. METHYLPREDNISOLONE [Concomitant]
     Active Substance: METHYLPREDNISOLONE
     Dosage: 4 MILLIGRAM, QD
     Route: 065
     Dates: start: 20221013, end: 20221208
  8. OCTAGAM IMMUNE GLOBULIN (HUMAN) [Concomitant]
     Active Substance: HUMAN IMMUNOGLOBULIN G
     Indication: Thrombocytopenia
     Dosage: 30 GRAM
     Route: 042
     Dates: start: 20221108, end: 20221108

REACTIONS (7)
  - Thrombocytopenia [Not Recovered/Not Resolved]
  - Haemorrhage [Recovered/Resolved]
  - Haematoma [Recovered/Resolved]
  - Subarachnoid haemorrhage [Recovered/Resolved]
  - Pseudomonal sepsis [Recovered/Resolved]
  - Muscle haemorrhage [Recovered/Resolved]
  - Disseminated intravascular coagulation [Unknown]

NARRATIVE: CASE EVENT DATE: 20221028
